FAERS Safety Report 10080495 (Version 1)
Quarter: 2014Q2

REPORT INFORMATION
  Report Type: Report from Study
  Country: US (occurrence: US)
  Receive Date: 20140416
  Receipt Date: 20140416
  Transmission Date: 20141212
  Serious: Yes (Hospitalization, Other)
  Sender: FDA-Public Use
  Company Number: US-BIOGENIDEC-2014BI032279

PATIENT
  Age: 31 Year
  Sex: Female
  Weight: 59 kg

DRUGS (14)
  1. TYSABRI [Suspect]
     Indication: MULTIPLE SCLEROSIS
     Route: 042
     Dates: start: 20090414
  2. GUAIFENESIN-CODEINE [Concomitant]
     Indication: COUGH
     Route: 048
     Dates: start: 20131226, end: 20140117
  3. AZITHROMYCIN [Concomitant]
     Dates: start: 20131226, end: 20140117
  4. ACETAMINOPHEN-CODEINE [Concomitant]
     Indication: PAIN
     Route: 048
     Dates: start: 20131004, end: 20140117
  5. DICLOFENAC [Concomitant]
     Route: 048
     Dates: start: 20131004, end: 20140117
  6. BACLOFEN [Concomitant]
     Route: 048
  7. NORETHINDRONE-ETHINYL ESTRADIOL [Concomitant]
     Route: 048
     Dates: start: 20130607, end: 20140128
  8. CHOLECALCIFEROL [Concomitant]
     Route: 048
     Dates: start: 20130423
  9. GABAPENTIN [Concomitant]
     Indication: PAIN IN EXTREMITY
     Route: 048
     Dates: start: 20121025
  10. ALPRAZOLAM [Concomitant]
     Indication: SLEEP DISORDER
     Route: 048
  11. NAPROXEN [Concomitant]
     Indication: HEADACHE
     Route: 048
  12. LISDEXAMFETAMINE [Concomitant]
     Indication: ASTHENIA
     Route: 048
  13. FISH OIL [Concomitant]
     Route: 048
  14. CYANOCOBALAMIN [Concomitant]
     Route: 048

REACTIONS (2)
  - Endometriosis [Recovered/Resolved]
  - Staphylococcal infection [Recovered/Resolved]
